FAERS Safety Report 10249862 (Version 1)
Quarter: 2014Q2

REPORT INFORMATION
  Report Type: Spontaneous
  Country: US (occurrence: US)
  Receive Date: 20140620
  Receipt Date: 20140620
  Transmission Date: 20141212
  Serious: Yes (Other)
  Sender: FDA-Public Use
  Company Number: US-JNJFOC-20140607524

PATIENT
  Age: 61 Year
  Sex: Male

DRUGS (1)
  1. STELARA [Suspect]
     Indication: PSORIASIS
     Route: 058
     Dates: start: 201311

REACTIONS (2)
  - Thrombosis [Recovered/Resolved]
  - Pulmonary embolism [Recovered/Resolved]
